FAERS Safety Report 5343506-3 (Version None)
Quarter: 2007Q2

REPORT INFORMATION
  Report Type: 
  Country: None (occurrence: None)
  Receive Date: 20070604
  Receipt Date: 20070525
  Transmission Date: 20071010
  Serious: Yes (Other)
  Sender: FDA-Public Use
  Company Number: PHBS2007BR08835

PATIENT
  Age: 38 Year
  Sex: Female
  Weight: 39 kg

DRUGS (1)
  1. FLOTAC [Suspect]
     Dosage: UNK, Q12H
     Route: 048
     Dates: end: 20070523

REACTIONS (7)
  - BREATHING-RELATED SLEEP DISORDER [None]
  - DRUG HYPERSENSITIVITY [None]
  - OBSTRUCTIVE AIRWAYS DISORDER [None]
  - RASH PAPULAR [None]
  - SKIN EXFOLIATION [None]
  - SWELLING FACE [None]
  - URTICARIA GENERALISED [None]
